FAERS Safety Report 24423033 (Version 1)
Quarter: 2024Q4

REPORT INFORMATION
  Report Type: Spontaneous
  Country: US (occurrence: None)
  Receive Date: 20241010
  Receipt Date: 20241010
  Transmission Date: 20250115
  Serious: Yes (Hospitalization)
  Sender: Public
  Company Number: None

PATIENT
  Age: 58 Year
  Sex: Male
  Weight: 96.2 kg

DRUGS (3)
  1. DARATUMUMAB [Suspect]
     Active Substance: DARATUMUMAB
     Dates: end: 20240624
  2. DEXAMETHASONE [Suspect]
     Active Substance: DEXAMETHASONE
     Dates: end: 20240624
  3. LENALIDOMIDE [Suspect]
     Active Substance: LENALIDOMIDE
     Dates: end: 20240630

REACTIONS (13)
  - Diarrhoea [None]
  - Vomiting [None]
  - Acute kidney injury [None]
  - Hyperkalaemia [None]
  - Chronic kidney disease [None]
  - Blood lactic acid increased [None]
  - Hypovolaemia [None]
  - Atrioventricular block first degree [None]
  - Electrocardiogram ST segment abnormal [None]
  - Electrocardiogram T wave abnormal [None]
  - Electrocardiogram abnormal [None]
  - Septic shock [None]
  - Gastroenteritis [None]

NARRATIVE: CASE EVENT DATE: 20240707
